FAERS Safety Report 13820009 (Version 1)
Quarter: 2017Q3

REPORT INFORMATION
  Report Type: Spontaneous
  Country: US (occurrence: US)
  Receive Date: 20170801
  Receipt Date: 20170801
  Transmission Date: 20171127
  Serious: Yes (Other)
  Sender: FDA-Public Use
  Company Number: US-BEH-2017082318

PATIENT
  Sex: Female
  Weight: 57.14 kg

DRUGS (19)
  1. VALIUM [Concomitant]
     Active Substance: DIAZEPAM
  2. VITAMIN A                          /00056001/ [Concomitant]
     Active Substance: RETINOL
  3. HIZENTRA [Suspect]
     Active Substance: HUMAN IMMUNOGLOBULIN G
     Dosage: UNK
     Route: 058
  4. ACETAMINOPHEN. [Concomitant]
     Active Substance: ACETAMINOPHEN
  5. BIOTIN [Concomitant]
     Active Substance: BIOTIN
  6. CALCIUM CARBONATE W/MAGNESIUM HYDROXIDE [Concomitant]
  7. LIDOCAINE. [Concomitant]
     Active Substance: LIDOCAINE
  8. VITAMIN D3 [Concomitant]
     Active Substance: CHOLECALCIFEROL
  9. PROBIOTIC                          /06395501/ [Concomitant]
     Active Substance: BIFIDOBACTERIUM ANIMALIS LACTIS
  10. WELLBUTRIN [Concomitant]
     Active Substance: BUPROPION HYDROCHLORIDE
  11. EVOXAC [Concomitant]
     Active Substance: CEVIMELINE HYDROCHLORIDE
  12. HIZENTRA [Suspect]
     Active Substance: HUMAN IMMUNOGLOBULIN G
     Indication: IMMUNODEFICIENCY COMMON VARIABLE
     Dosage: 12 G, QW
     Route: 058
     Dates: start: 20130604
  13. LIDOCAINE/PRILOCAINE [Concomitant]
     Active Substance: LIDOCAINE\PRILOCAINE
  14. EPINEPHRINE. [Concomitant]
     Active Substance: EPINEPHRINE
  15. THYROID [Concomitant]
     Active Substance: LEVOTHYROXINE\LIOTHYRONINE
  16. CLONAZEPAM. [Concomitant]
     Active Substance: CLONAZEPAM
  17. DIPHENHYDRAMINE. [Concomitant]
     Active Substance: DIPHENHYDRAMINE
  18. ALLERGY FORMULA [Concomitant]
  19. VALTREX [Concomitant]
     Active Substance: VALACYCLOVIR HYDROCHLORIDE

REACTIONS (4)
  - Joint swelling [Unknown]
  - Surgery [Unknown]
  - Peripheral swelling [Unknown]
  - Post procedural infection [Unknown]
